FAERS Safety Report 7341130-4 (Version None)
Quarter: 2011Q1

REPORT INFORMATION
  Report Type: 
  Country: None (occurrence: None)
  Receive Date: 20110309
  Receipt Date: 20110301
  Transmission Date: 20110831
  Serious: Yes (Other)
  Sender: FDA-Public Use
  Company Number: A0915992A

PATIENT

DRUGS (1)
  1. LAMICTAL [Suspect]
     Route: 065
     Dates: start: 20100801

REACTIONS (3)
  - RECTAL HAEMORRHAGE [None]
  - RASH [None]
  - ANORECTAL DISCOMFORT [None]
